FAERS Safety Report 5318095-X (Version None)
Quarter: 2007Q1

REPORT INFORMATION
  Report Type: 
  Country: None (occurrence: None)
  Receive Date: 20070207
  Receipt Date: 20070109
  Transmission Date: 20070707
  Serious: No
  Sender: FDA-Public Use
  Company Number: SPV1-2007-00271

PATIENT
  Age: 49 Year
  Sex: Female
  Weight: 71 kg

DRUGS (7)
  1. FOSRENOL [Suspect]
     Indication: HYPERPHOSPHATAEMIA
     Dosage: 750 MG, 2X/DAY:BID, ORAL
     Route: 048
     Dates: start: 20061121, end: 20061201
  2. CORODIL /00574901/ (ENALAPRIL) [Concomitant]
  3. DIURAL /00032601/ (FUROSEMIDE) [Concomitant]
  4. SIMVASTATIN [Concomitant]
  5. NEORECORMON (SIMVASTATIN) [Concomitant]
  6. LANTUS [Concomitant]
  7. NOVORAPID (INSULIN ASPART) [Concomitant]

REACTIONS (3)
  - FLATULENCE [None]
  - NAUSEA [None]
  - VOMITING [None]
